FAERS Safety Report 8350136-8 (Version None)
Quarter: 2012Q2

REPORT INFORMATION
  Report Type: 
  Country: None (occurrence: None)
  Receive Date: 20120510
  Receipt Date: 20120504
  Transmission Date: 20120825
  Serious: Yes (Life-Threatening, Hospitalization)
  Sender: FDA-Public Use
  Company Number: US-BAYER-2012-012157

PATIENT
  Age: 30 Year
  Sex: Female
  Weight: 56.78 kg

DRUGS (10)
  1. BUPROPION HYDROCHLORIDE [Concomitant]
     Dosage: UNK
     Route: 048
  2. TRAMADOL HYDROCHLORIDE [Concomitant]
  3. ACETAMINOPHEN W/ CODEINE [Concomitant]
  4. ZOLPIDEM [Concomitant]
     Dosage: 10 MG, UNK
     Route: 048
  5. PROPOXYPHENE HYDROCHLORIDE [Concomitant]
     Dosage: UNK
  6. SEASONIQUE [Concomitant]
     Dosage: UNK
  7. KETOCONAZOLE [Concomitant]
     Dosage: UNK
     Route: 061
  8. DROSPIRENONE AND ETHINYL ESTRADIOL [Suspect]
     Indication: PRODUCT USED FOR UNKNOWN INDICATION
  9. SERTRALINE HYDROCHLORIDE [Concomitant]
     Dosage: 25 MG, UNK
     Route: 048
  10. APAP TAB [Concomitant]

REACTIONS (5)
  - PULMONARY EMBOLISM [None]
  - ANXIETY [None]
  - INJURY [None]
  - PAIN [None]
  - ANHEDONIA [None]
